FAERS Safety Report 17080262 (Version 1)
Quarter: 2019Q4

REPORT INFORMATION
  Report Type: Spontaneous
  Country: IT (occurrence: IT)
  Receive Date: 20191127
  Receipt Date: 20191127
  Transmission Date: 20200122
  Serious: Yes (Hospitalization)
  Sender: FDA-Public Use
  Company Number: IT-TEVA-2019-IT-1141835

PATIENT
  Age: 77 Year
  Sex: Male

DRUGS (3)
  1. ENOXAPARIN SODIUM. [Interacting]
     Active Substance: ENOXAPARIN SODIUM
     Indication: DEEP VEIN THROMBOSIS
     Dosage: INTERACTING DRUGS
     Route: 058
     Dates: start: 20190101, end: 20191005
  2. FONDAPARINUX SODIUM. [Interacting]
     Active Substance: FONDAPARINUX SODIUM
     Indication: DEEP VEIN THROMBOSIS
     Route: 058
     Dates: start: 20190101, end: 20191005
  3. CLOPIDOGREL HYDROCHLORIDE [Suspect]
     Active Substance: CLOPIDOGREL HYDROCHLORIDE
     Indication: DEEP VEIN THROMBOSIS
     Dosage: INTERACTING DRUGS
     Route: 048
     Dates: start: 20190101, end: 20191005

REACTIONS (2)
  - Chest wall haematoma [Unknown]
  - Drug interaction [Unknown]

NARRATIVE: CASE EVENT DATE: 20191005
